FAERS Safety Report 7207148-7 (Version None)
Quarter: 2011Q1

REPORT INFORMATION
  Report Type: 
  Country: None (occurrence: None)
  Receive Date: 20110103
  Receipt Date: 20101225
  Transmission Date: 20110831
  Serious: Yes (Hospitalization)
  Sender: FDA-Public Use
  Company Number: US-ABBOTT-10P-163-0693653-00

PATIENT
  Weight: 104.42 kg

DRUGS (3)
  1. SIMCOR [Suspect]
     Dates: start: 20101115
  2. SIMCOR [Suspect]
     Indication: BLOOD CHOLESTEROL INCREASED
     Dates: start: 20080603
  3. INSULIN [Concomitant]
     Indication: PRODUCT USED FOR UNKNOWN INDICATION
     Dosage: 40 MG

REACTIONS (3)
  - CARDIAC FAILURE CONGESTIVE [None]
  - FLUSHING [None]
  - BLOOD GLUCOSE INCREASED [None]
